FAERS Safety Report 20917476 (Version 3)
Quarter: 2022Q2

REPORT INFORMATION
  Report Type: Spontaneous
  Country: US (occurrence: US)
  Receive Date: 20220606
  Receipt Date: 20220616
  Transmission Date: 20220720
  Serious: Yes (Other)
  Sender: FDA-Public Use
  Company Number: US-SUNOVION-2022SUN001708

PATIENT
  Sex: Female

DRUGS (1)
  1. LEVALBUTEROL TARTRATE [Suspect]
     Active Substance: LEVALBUTEROL TARTRATE
     Dosage: UNK
     Route: 055

REACTIONS (5)
  - Cataract [Unknown]
  - Visual impairment [Recovered/Resolved]
  - Cataract operation complication [Recovered/Resolved]
  - Memory impairment [Unknown]
  - Product preparation error [Unknown]
